FAERS Safety Report 16382582 (Version 2)
Quarter: 2019Q2

REPORT INFORMATION
  Report Type: Spontaneous
  Country: AR (occurrence: AR)
  Receive Date: 20190603
  Receipt Date: 20190626
  Transmission Date: 20190711
  Serious: Yes (Other)
  Sender: FDA-Public Use
  Company Number: AR-ARBOR PHARMACEUTICALS, LLC-AR-2019ARB000911

PATIENT
  Age: 11 Year
  Sex: Female

DRUGS (3)
  1. TRIPTODUR [Suspect]
     Active Substance: TRIPTORELIN
     Indication: OFF LABEL USE
  2. TRIPTODUR [Suspect]
     Active Substance: TRIPTORELIN
     Indication: BODY HEIGHT BELOW NORMAL
     Dosage: 11.25, 1 IN 12 WK
     Route: 030
     Dates: start: 20190328
  3. SOMATROPIN RECOMBINANT [Concomitant]
     Active Substance: SOMATROPIN
     Indication: PRODUCT USED FOR UNKNOWN INDICATION
     Dosage: 1IU/KG/WEEK

REACTIONS (6)
  - Vision blurred [Recovered/Resolved]
  - Dizziness [Not Recovered/Not Resolved]
  - Off label use [Unknown]
  - Photophobia [Not Recovered/Not Resolved]
  - Tinnitus [Not Recovered/Not Resolved]
  - Vertigo [Not Recovered/Not Resolved]

NARRATIVE: CASE EVENT DATE: 20190328
